FAERS Safety Report 7902911-9 (Version None)
Quarter: 2011Q4

REPORT INFORMATION
  Report Type: 
  Country: None (occurrence: None)
  Receive Date: 20111109
  Receipt Date: 20111017
  Transmission Date: 20120403
  Serious: Yes (Hospitalization)
  Sender: FDA-Public Use
  Company Number: CA-JNJFOC-20111009857

PATIENT
  Sex: Female
  Weight: 51.3 kg

DRUGS (8)
  1. VSL3 [Concomitant]
     Route: 065
  2. PREDNISONE [Concomitant]
     Route: 065
  3. PERCOCET [Concomitant]
     Route: 065
  4. PENTASA ENEMA [Concomitant]
     Route: 065
  5. ESCITALOPRAM [Concomitant]
     Route: 065
  6. REMICADE [Suspect]
     Indication: CROHN'S DISEASE
     Route: 042
     Dates: start: 20110427
  7. CODEINE [Concomitant]
     Route: 065
  8. ONDANSETRON [Concomitant]
     Route: 065

REACTIONS (2)
  - WHITE BLOOD CELL COUNT INCREASED [None]
  - HYPONATRAEMIA [None]
